FAERS Safety Report 24328671 (Version 1)
Quarter: 2024Q3

REPORT INFORMATION
  Report Type: Spontaneous
  Country: US (occurrence: None)
  Receive Date: 20240917
  Receipt Date: 20240917
  Transmission Date: 20241017
  Serious: Yes (Hospitalization)
  Sender: Public
  Company Number: None

PATIENT
  Age: 62 Year
  Sex: Male

DRUGS (2)
  1. EVEROLIMUS [Suspect]
     Active Substance: EVEROLIMUS
     Indication: Renal cancer
     Dosage: FREQUENCY : DAILY?
  2. LENVIMA [Suspect]
     Active Substance: LENVATINIB

REACTIONS (4)
  - Abdominal pain [None]
  - Hepatic function abnormal [None]
  - Fatigue [None]
  - Asthenia [None]
